FAERS Safety Report 7910120-2 (Version None)
Quarter: 2011Q4

REPORT INFORMATION
  Report Type: 
  Country: None (occurrence: None)
  Receive Date: 20111111
  Receipt Date: 20111026
  Transmission Date: 20120403
  Serious: Yes (Other)
  Sender: FDA-Public Use
  Company Number: GB-ROCHE-GNE322378

PATIENT
  Sex: Female
  Weight: 57.068 kg

DRUGS (5)
  1. PREDNISOLONE [Concomitant]
  2. PHYLLOCONTIN [Concomitant]
  3. MONTELUKAST SODIUM [Concomitant]
  4. SALMETEROL [Concomitant]
  5. XOLAIR [Suspect]
     Indication: ASTHMA
     Dosage: UNK
     Route: 058
     Dates: start: 20090121, end: 20090218

REACTIONS (4)
  - COLD SWEAT [None]
  - DRUG HYPERSENSITIVITY [None]
  - MALAISE [None]
  - NAUSEA [None]
